FAERS Safety Report 5811602-X (Version None)
Quarter: 2008Q3

REPORT INFORMATION
  Report Type: 
  Country: None (occurrence: None)
  Receive Date: 20080711
  Receipt Date: 20080711
  Transmission Date: 20090109
  Serious: No
  Sender: FDA-Public Use
  Company Number: None

PATIENT
  Sex: Female
  Weight: 79.8331 kg

DRUGS (1)
  1. ZYVOX [Suspect]
     Indication: INFECTION
     Dosage: 1 TABLET 2 DAY
     Dates: start: 20080616, end: 20080619

REACTIONS (8)
  - AGEUSIA [None]
  - ANORECTAL DISCOMFORT [None]
  - COUGH [None]
  - DYSGEUSIA [None]
  - GLOSSODYNIA [None]
  - ORAL DISCOMFORT [None]
  - OROPHARYNGEAL PAIN [None]
  - PHARYNGEAL OEDEMA [None]
